FAERS Safety Report 11853219 (Version 2)
Quarter: 2016Q1

REPORT INFORMATION
  Report Type: Spontaneous
  Country: US (occurrence: US)
  Receive Date: 20151218
  Receipt Date: 20160119
  Transmission Date: 20160526
  Serious: Yes (Other)
  Sender: FDA-Public Use
  Company Number: US-JAZZ-2015-US-021707

PATIENT
  Sex: Female

DRUGS (5)
  1. XYREM [Suspect]
     Active Substance: SODIUM OXYBATE
     Dosage: 2.25 G, UNK
  2. RITALIN [Concomitant]
     Active Substance: METHYLPHENIDATE HYDROCHLORIDE
     Indication: PRODUCT USED FOR UNKNOWN INDICATION
     Dosage: UNK
  3. XYREM [Suspect]
     Active Substance: SODIUM OXYBATE
     Indication: SLEEP DISORDER
     Dosage: 2.25 G, BID
     Route: 048
     Dates: start: 200506
  4. NUVIGIL [Concomitant]
     Active Substance: ARMODAFINIL
     Indication: HYPERSOMNIA
     Dosage: UNK
     Dates: start: 20010101
  5. XYREM [Suspect]
     Active Substance: SODIUM OXYBATE
     Indication: HYPERSOMNIA
     Dosage: 2.25 G, QD
     Route: 048

REACTIONS (4)
  - Asthma exercise induced [Unknown]
  - Rheumatoid arthritis [Not Recovered/Not Resolved]
  - Intentional product misuse [Unknown]
  - Bronchitis [Unknown]

NARRATIVE: CASE EVENT DATE: 2010
